FAERS Safety Report 8301767-2 (Version None)
Quarter: 2012Q1

REPORT INFORMATION
  Report Type: 
  Country: None (occurrence: None)
  Receive Date: 20120326
  Receipt Date: 20110817
  Transmission Date: 20120608
  Serious: Yes (Other)
  Sender: FDA-Public Use
  Company Number: PHHY2010US55063

PATIENT
  Age: 53 Year
  Sex: Female

DRUGS (2)
  1. TASIGNA [Suspect]
     Indication: CHRONIC MYELOID LEUKAEMIA
     Dosage: 200 MG, QD, ORAL ; 400 MG, EVERY 12 HOURS, ORAL
     Route: 048
     Dates: start: 20100812
  2. LEVOTHYROXINE SODIUM [Concomitant]

REACTIONS (2)
  - DYSPEPSIA [None]
  - PROTEIN TOTAL INCREASED [None]
